FAERS Safety Report 19988391 (Version 7)
Quarter: 2022Q4

REPORT INFORMATION
  Report Type: Report from Study
  Country: CA (occurrence: CA)
  Receive Date: 20211023
  Receipt Date: 20221219
  Transmission Date: 20230112
  Serious: Yes (Other)
  Sender: FDA-Public Use
  Company Number: CA-002147023-PHHY2018CA042084

PATIENT
  Age: 60 Year
  Sex: Female
  Weight: 70 kg

DRUGS (16)
  1. AIMOVIG [Suspect]
     Active Substance: ERENUMAB-AOOE
     Indication: Migraine
     Dosage: UNK
     Route: 065
  2. XOLAIR [Suspect]
     Active Substance: OMALIZUMAB
     Indication: Chronic spontaneous urticaria
     Dosage: 300 MG, EVERY 3 WEEKS
     Route: 058
     Dates: start: 20180412, end: 20190108
  3. XOLAIR [Suspect]
     Active Substance: OMALIZUMAB
     Dosage: 300 MG, EVERY 4 WEEKS
     Route: 058
     Dates: start: 20180605
  4. XOLAIR [Suspect]
     Active Substance: OMALIZUMAB
     Dosage: 300 MG, EVERY 4 WEEKS
     Route: 058
     Dates: start: 20180712
  5. XOLAIR [Suspect]
     Active Substance: OMALIZUMAB
     Dosage: 300 MG, EVERY 3 WEEKS
     Route: 058
     Dates: start: 20180906
  6. XOLAIR [Suspect]
     Active Substance: OMALIZUMAB
     Dosage: 300 MG, EVERY 4 WEEKS
     Route: 058
     Dates: start: 20190430, end: 20190430
  7. XOLAIR [Suspect]
     Active Substance: OMALIZUMAB
     Dosage: 300 MG, EVERY 3 WEEKS
     Route: 058
     Dates: start: 20210324, end: 20210627
  8. XOLAIR [Suspect]
     Active Substance: OMALIZUMAB
     Dosage: 300 MG, EVERY 4 WEEKS
     Route: 058
     Dates: start: 20220419
  9. XOLAIR [Suspect]
     Active Substance: OMALIZUMAB
     Dosage: 300 MG,  EVERY 3 WEEKS
     Route: 058
     Dates: start: 20220510
  10. XOLAIR [Suspect]
     Active Substance: OMALIZUMAB
     Dosage: UNK
     Route: 065
     Dates: start: 20220718
  11. XOLAIR [Suspect]
     Active Substance: OMALIZUMAB
     Dosage: 300 MG, EVERY 3 WEEKS
     Route: 058
     Dates: start: 20220906
  12. XOLAIR [Suspect]
     Active Substance: OMALIZUMAB
     Dosage: UNK
     Route: 058
     Dates: start: 20221021
  13. Reactine [Concomitant]
     Indication: Product used for unknown indication
     Dosage: 3 DOSAGE FORM, TID
     Route: 048
     Dates: start: 201802
  14. Reactine [Concomitant]
     Dosage: 1 DOSAGE FORM, TID
     Route: 048
     Dates: start: 201802
  15. BENADRYL [Concomitant]
     Active Substance: DIPHENHYDRAMINE HYDROCHLORIDE
     Indication: Product used for unknown indication
     Dosage: 4 DOSAGE FORM, QD
     Route: 048
     Dates: start: 201801
  16. PREDNISONE [Concomitant]
     Active Substance: PREDNISONE
     Indication: Product used for unknown indication
     Dosage: 1 DOSAGE FORM, QD
     Route: 048
     Dates: start: 1984

REACTIONS (18)
  - Immunodeficiency [Unknown]
  - Malaise [Unknown]
  - Blood thyroid stimulating hormone increased [Unknown]
  - Chills [Unknown]
  - Thyroid disorder [Unknown]
  - Blood creatinine increased [Unknown]
  - Swelling [Unknown]
  - Hypotension [Unknown]
  - Weight decreased [Unknown]
  - Dizziness [Unknown]
  - Fatigue [Unknown]
  - Hypertension [Unknown]
  - Hypersensitivity [Unknown]
  - Off label use [Unknown]
  - Headache [Unknown]
  - Drug hypersensitivity [Unknown]
  - Urticaria [Unknown]
  - Pruritus [Unknown]

NARRATIVE: CASE EVENT DATE: 20180101
